FAERS Safety Report 19602011 (Version 1)
Quarter: 2021Q3

REPORT INFORMATION
  Report Type: Spontaneous
  Country: US (occurrence: US)
  Receive Date: 20210723
  Receipt Date: 20210723
  Transmission Date: 20211014
  Serious: No
  Sender: FDA-Public Use
  Company Number: US-CELGENEUS-USA-20210702791

PATIENT
  Sex: Male

DRUGS (7)
  1. ZEPOSIA [Suspect]
     Active Substance: OZANIMOD HYDROCHLORIDE
     Indication: CLINICALLY ISOLATED SYNDROME
  2. ZEPOSIA [Suspect]
     Active Substance: OZANIMOD HYDROCHLORIDE
     Indication: MULTIPLE SCLEROSIS
  3. ZEPOSIA [Suspect]
     Active Substance: OZANIMOD HYDROCHLORIDE
     Indication: MULTIPLE SCLEROSIS RELAPSE
  4. ZEPOSIA [Suspect]
     Active Substance: OZANIMOD HYDROCHLORIDE
     Indication: MULTIPLE SCLEROSIS RELAPSE
  5. ZEPOSIA [Suspect]
     Active Substance: OZANIMOD HYDROCHLORIDE
     Indication: SECONDARY PROGRESSIVE MULTIPLE SCLEROSIS
  6. ZEPOSIA [Suspect]
     Active Substance: OZANIMOD HYDROCHLORIDE
     Indication: RELAPSING-REMITTING MULTIPLE SCLEROSIS
  7. ZEPOSIA [Suspect]
     Active Substance: OZANIMOD HYDROCHLORIDE
     Indication: COLITIS ULCERATIVE
     Dosage: DOSE : TITRATION
     Route: 048
     Dates: start: 20210710

REACTIONS (2)
  - Fatigue [Unknown]
  - Pyrexia [Unknown]

NARRATIVE: CASE EVENT DATE: 202107
